FAERS Safety Report 25144178 (Version 1)
Quarter: 2025Q2

REPORT INFORMATION
  Report Type: Spontaneous
  Country: US (occurrence: US)
  Receive Date: 20250401
  Receipt Date: 20250401
  Transmission Date: 20250716
  Serious: Yes (Death)
  Sender: ROCHE
  Company Number: US-ROCHE-10000246466

PATIENT

DRUGS (1)
  1. COTELLIC [Suspect]
     Active Substance: COBIMETINIB FUMARATE
     Indication: Product used for unknown indication
     Route: 065

REACTIONS (1)
  - Death [Fatal]

NARRATIVE: CASE EVENT DATE: 20250304
